FAERS Safety Report 7739525-X (Version None)
Quarter: 2011Q3

REPORT INFORMATION
  Report Type: 
  Country: None (occurrence: None)
  Receive Date: 20110909
  Receipt Date: 20110902
  Transmission Date: 20111222
  Serious: Yes (Hospitalization)
  Sender: FDA-Public Use
  Company Number: CN-GENZYME-CERZ-1002034

PATIENT
  Sex: Male
  Weight: 58 kg

DRUGS (5)
  1. CEREZYME [Suspect]
     Indication: GAUCHER'S DISEASE
     Dosage: 35 U/KG, Q4W
     Route: 042
     Dates: start: 20100701
  2. PHENOBARBITAL TAB [Concomitant]
     Indication: CONVULSION
     Dosage: 60 MG, TID
  3. CEREZYME [Suspect]
     Dosage: 60 U/KG, Q2W
     Route: 042
     Dates: start: 19950701, end: 20090701
  4. CEREZYME [Suspect]
     Dosage: 30 U/KG, Q4W
     Route: 042
     Dates: start: 20090701, end: 20100701
  5. CEREZYME [Suspect]
     Dosage: 30 U/KG, Q2W
     Route: 042

REACTIONS (8)
  - COUGH [None]
  - PLEURAL EFFUSION [None]
  - HYPERHIDROSIS [None]
  - PYREXIA [None]
  - LOSS OF CONSCIOUSNESS [None]
  - NERVOUSNESS [None]
  - CONVULSION [None]
  - BLOOD POTASSIUM DECREASED [None]
